FAERS Safety Report 7209344-1 (Version None)
Quarter: 2010Q4

REPORT INFORMATION
  Report Type: 
  Country: None (occurrence: None)
  Receive Date: 20101223
  Receipt Date: 20101206
  Transmission Date: 20110411
  Serious: Yes (Hospitalization)
  Sender: FDA-Public Use
  Company Number: 7030618

PATIENT
  Age: 45 Year
  Sex: Female

DRUGS (11)
  1. EUTHYRAL (NOVOTHYRAL) (TABLET) (LEVOTHYROXINE SODIUM, LIOTHYRONINE SOD [Suspect]
     Indication: HYPOTHYROIDISM
     Dosage: 1 DF (1 DF, 1 IN 1 D), ORAL
     Route: 048
     Dates: start: 20040101, end: 20050101
  2. MEDIATOR (BENFLUOREX HYDROCHLORIDE) (150 MG, COATED TABLET) (BENFLUORE [Suspect]
     Indication: HYPERLIPIDAEMIA
     Dosage: 2 DF (1 DF, 2 IN 1 D), ORAL
     Route: 048
     Dates: start: 20040526, end: 20091212
  3. HYDROCORTISONE ROUSSEL (HYDROCORTISONE) (10 MG, TABLET) (HYDROCORTISON [Suspect]
     Indication: PRODUCT USED FOR UNKNOWN INDICATION
     Dosage: 1 DF (1 DF, 1 IN 1 D), ORAL
     Route: 048
     Dates: start: 20040101, end: 20050101
  4. LIPANTHYL (FENOFIBRATE) (160 MG, COATED TABLET) (FENOFIBRATE) [Suspect]
     Indication: HYPERLIPIDAEMIA
     Dosage: 1 DF (1 DF, 1 IN 1 D), ORAL
     Route: 048
     Dates: start: 20040101, end: 20050101
  5. KENZEN (CANDESARTAN CILEXETIL) (CANDESARTAN CILEXETIL) [Concomitant]
  6. LASILIX (FUROSEMIDE) (FUROSEMIDE) [Concomitant]
  7. ALDALIX (OSYROL-LASIX) (FUROSEMIDE, SPIRONOLACTONE) [Concomitant]
  8. LEXOMIL (BROMAZEPAM) (BROMAZEPAM) [Concomitant]
  9. CARDARONE (AMIODARONE HYDROCHLORIDE) (AMIODARONE HYDROCHLORIDE) [Concomitant]
  10. ALDACTONE [Concomitant]
  11. PREVISCAN (FLUINDIONE) (FLUINDIONE) [Concomitant]

REACTIONS (3)
  - CARDIAC VALVE DISEASE [None]
  - MITRAL VALVE INCOMPETENCE [None]
  - MITRAL VALVE STENOSIS [None]
